FAERS Safety Report 4786141-8 (Version None)
Quarter: 2005Q4

REPORT INFORMATION
  Report Type: 
  Country: None (occurrence: None)
  Receive Date: 20051003
  Receipt Date: 19990318
  Transmission Date: 20060501
  Serious: Yes (Hospitalization)
  Sender: FDA-Public Use
  Company Number: B045099

PATIENT
  Age: 35 Year
  Sex: Male

DRUGS (9)
  1. ZERIT [Suspect]
     Indication: HIV INFECTION
     Dosage: D/C'D 1/13/00, RESTARTED 3/11/00 - 3/31/01 80 MG/DAY THEN 2/3/03 TO UNKNOWN 60 MG/DAY
     Route: 048
     Dates: start: 19970731
  2. EPIVIR [Suspect]
     Indication: HIV INFECTION
     Dosage: STOPPED 13-JAN-2000, RESTARTED 11-MAR-2000 TO 31-MAR-2001, RESTARTED 18-MAR-2003 TO UNKNOWN
     Route: 048
     Dates: start: 19970314
  3. INVIRASE [Suspect]
     Indication: HIV INFECTION
     Dosage: STOPPED 13-JAN-2000, 1800 MG/DAY 11-MAR-2000 TO 31-MAR-2001, 1800 MG/DAY 18-MAR-2003 TO UNKNOWN
     Route: 048
     Dates: start: 19970417
  4. CROSS EIGHT M [Concomitant]
     Dates: start: 20030203
  5. URSODIOL [Concomitant]
     Route: 048
     Dates: start: 20030401
  6. NEO-MINOPHAGEN C [Concomitant]
     Dates: start: 20030401
  7. PEGINTERFERON ALFA-2A [Concomitant]
  8. DENOSINE [Concomitant]
     Route: 048
     Dates: start: 19970814, end: 19980304
  9. BENAMBAX [Concomitant]
     Dates: start: 19950608, end: 19980716

REACTIONS (3)
  - HEPATIC CIRRHOSIS [None]
  - HEPATIC FUNCTION ABNORMAL [None]
  - HEPATITIS C [None]
